FAERS Safety Report 7711664-9 (Version None)
Quarter: 2011Q3

REPORT INFORMATION
  Report Type: 
  Country: None (occurrence: None)
  Receive Date: 20110826
  Receipt Date: 20110718
  Transmission Date: 20111222
  Serious: No
  Sender: FDA-Public Use
  Company Number: US-BRISTOL-MYERS SQUIBB COMPANY-15907322

PATIENT
  Age: 72 Year
  Sex: Male

DRUGS (4)
  1. METFORMIN HCL [Concomitant]
  2. GLIMEPIRIDE [Concomitant]
  3. ONGLYZA [Suspect]
     Dosage: STARTED 2-2.5 MONTHS AGO
  4. ACTOS [Concomitant]

REACTIONS (1)
  - ABDOMINAL PAIN UPPER [None]
